FAERS Safety Report 17236459 (Version 7)
Quarter: 2022Q2

REPORT INFORMATION
  Report Type: Spontaneous
  Country: CA (occurrence: CA)
  Receive Date: 20200106
  Receipt Date: 20220608
  Transmission Date: 20220721
  Serious: Yes (Other)
  Sender: FDA-Public Use
  Company Number: CA-PFIZER INC-2020001359

PATIENT
  Age: 55 Year
  Sex: Female
  Weight: 63 kg

DRUGS (18)
  1. IBRANCE [Suspect]
     Active Substance: PALBOCICLIB
     Indication: Breast cancer metastatic
     Dosage: 125 MG, CYCLIC (21 DAYS ON, 7 DAYS OFF)
     Route: 048
     Dates: start: 20190722
  2. ACETAMINOPHEN [Concomitant]
     Active Substance: ACETAMINOPHEN
     Dosage: UNK
  3. ACH LETROZOLE [Concomitant]
     Dosage: 2.5 MG TAB
  4. PANTOPRAZOLE SODIUM [Concomitant]
     Active Substance: PANTOPRAZOLE SODIUM
     Indication: Gastrooesophageal reflux disease
     Dosage: 40 MG, 1X/DAY
     Route: 048
     Dates: start: 20190923
  5. OXAZEPAM [Concomitant]
     Active Substance: OXAZEPAM
     Dosage: UNK
  6. AURO VENLAFAXINE XR [Concomitant]
     Dosage: UNK
  7. CHOLECALCIFEROL [Concomitant]
     Active Substance: CHOLECALCIFEROL
     Indication: Supplementation therapy
     Dosage: 10000 IU, 1X/DAY
     Route: 048
     Dates: start: 20190430
  8. EFFEXOR [Concomitant]
     Active Substance: VENLAFAXINE HYDROCHLORIDE
     Indication: Affective disorder
     Dosage: 150 MG, 1X/DAY
     Route: 048
     Dates: start: 20190306
  9. JAMP CALCIUM [Concomitant]
     Indication: Supplementation therapy
     Dosage: 500 MG, 2X/DAY
     Route: 048
     Dates: start: 20190627
  10. JAMP LETROZOLE [Concomitant]
     Dosage: UNK
  11. ACETAMINOPHEN [Concomitant]
     Active Substance: ACETAMINOPHEN
     Dosage: UNK
  12. JAMP-PANTOPRAZOLE [Concomitant]
     Dosage: UNK
     Dates: start: 20191122
  13. LOPERAMIDE [Concomitant]
     Active Substance: LOPERAMIDE
     Dosage: UNK
  14. OXAZEPAM [Concomitant]
     Active Substance: OXAZEPAM
     Dosage: UNK
  15. MORPHINE SULFATE [Concomitant]
     Active Substance: MORPHINE SULFATE
     Dosage: UNK
  16. TARO CLOBETASOL [Concomitant]
     Dosage: UNK
  17. VENLAFAXINE HYDROCHLORIDE [Concomitant]
     Active Substance: VENLAFAXINE HYDROCHLORIDE
     Dosage: UNK
  18. XGEVA [Concomitant]
     Active Substance: DENOSUMAB
     Dosage: 120 MG, (1.7 ML, INJ)

REACTIONS (4)
  - Second primary malignancy [Unknown]
  - Invasive ductal breast carcinoma [Unknown]
  - Neoplasm progression [Unknown]
  - Nipple pain [Not Recovered/Not Resolved]

NARRATIVE: CASE EVENT DATE: 20191011
